FAERS Safety Report 5822774-5 (Version None)
Quarter: 2008Q3

REPORT INFORMATION
  Report Type: 
  Country: None (occurrence: None)
  Receive Date: 20080725
  Receipt Date: 20071005
  Transmission Date: 20090109
  Serious: No
  Sender: FDA-Public Use
  Company Number: US-AMGEN-KDL246694

PATIENT
  Sex: Male

DRUGS (14)
  1. EPOGEN [Suspect]
     Indication: DIALYSIS
     Dates: start: 20070820
  2. METOPROLOL TARTRATE [Concomitant]
  3. PREDNISONE TAB [Concomitant]
  4. PROGRAF [Concomitant]
  5. ACYCLOVIR [Concomitant]
  6. GLIPIZIDE [Concomitant]
  7. ACTOS [Concomitant]
  8. LIPITOR [Concomitant]
  9. GEMFIBROZIL [Concomitant]
  10. URSODIOL [Concomitant]
  11. PROTONIX [Concomitant]
  12. HYDRALAZINE HCL [Concomitant]
  13. MULTI-VITAMINS [Concomitant]
  14. MAGNESIUM OXIDE [Concomitant]

REACTIONS (1)
  - THERAPEUTIC RESPONSE DECREASED [None]
